FAERS Safety Report 10479638 (Version 3)
Quarter: 2015Q1

REPORT INFORMATION
  Report Type: Spontaneous
  Country: US (occurrence: US)
  Receive Date: 20140927
  Receipt Date: 20150114
  Transmission Date: 20150720
  Serious: No
  Sender: FDA-Public Use
  Company Number: US-B.I. PHARMACEUTICALS,INC./RIDGEFIELD-2014-BI-44018BP

PATIENT
  Age: 61 Year
  Sex: Female
  Weight: 83.91 kg

DRUGS (4)
  1. CYTOMEL [Concomitant]
     Active Substance: LIOTHYRONINE SODIUM
     Indication: HYPOTHYROIDISM
     Dosage: 15 MCG
     Route: 048
     Dates: start: 2007
  2. COMBIVENT [Suspect]
     Active Substance: ALBUTEROL SULFATE\IPRATROPIUM BROMIDE
     Indication: ASTHMA
     Dosage: DOSE PER APPLICATION: 20MCG /100MCG; DAILY DOSE: 120MCG/600MCG
     Route: 055
     Dates: start: 2011
  3. COMBIVENT [Suspect]
     Active Substance: ALBUTEROL SULFATE\IPRATROPIUM BROMIDE
     Dosage: STRENGTH: 20MCG/100 MCG; DOSE PER APPLICATION: 1 INHALATION
     Route: 055
     Dates: start: 201201
  4. TIROSINT [Concomitant]
     Active Substance: LEVOTHYROXINE SODIUM
     Indication: HYPOTHYROIDISM
     Dosage: 200 MCG
     Route: 048
     Dates: start: 201310

REACTIONS (4)
  - Off label use [Unknown]
  - Product quality issue [Unknown]
  - Overdose [Not Recovered/Not Resolved]
  - Dyspnoea [Recovered/Resolved]

NARRATIVE: CASE EVENT DATE: 2011
